FAERS Safety Report 7880868-7 (Version None)
Quarter: 2011Q4

REPORT INFORMATION
  Report Type: 
  Country: None (occurrence: None)
  Receive Date: 20111101
  Receipt Date: 20111020
  Transmission Date: 20120403
  Serious: Yes (Hospitalization)
  Sender: FDA-Public Use
  Company Number: NL-BAXTER-2011BH033617

PATIENT
  Age: 13 Year
  Sex: Male
  Weight: 54 kg

DRUGS (58)
  1. RASBURICASE [Concomitant]
     Indication: PRODUCT USED FOR UNKNOWN INDICATION
     Route: 042
     Dates: start: 20100212, end: 20100215
  2. GRANISETRON [Concomitant]
     Route: 042
     Dates: start: 20100303, end: 20100310
  3. POLYETHYLENE GLYCOL [Concomitant]
     Route: 048
     Dates: start: 20100319, end: 20100320
  4. POLYETHYLENE GLYCOL [Concomitant]
     Route: 048
     Dates: start: 20100320, end: 20100322
  5. POLYETHYLENE GLYCOL [Concomitant]
     Route: 048
     Dates: start: 20100322, end: 20100327
  6. CLEMASTINE FUMARATE [Concomitant]
     Route: 042
     Dates: start: 20100308, end: 20100312
  7. APREPITANT [Concomitant]
     Route: 048
     Dates: start: 20100402, end: 20100404
  8. APREPITANT [Concomitant]
     Route: 048
     Dates: start: 20100604, end: 20100605
  9. ACETAMINOPHEN [Concomitant]
     Indication: PRODUCT USED FOR UNKNOWN INDICATION
     Route: 048
     Dates: start: 20100213, end: 20100213
  10. ACETAMINOPHEN [Concomitant]
     Route: 054
     Dates: start: 20100215, end: 20100219
  11. CLEMASTINE FUMARATE [Concomitant]
     Indication: PRODUCT USED FOR UNKNOWN INDICATION
     Route: 042
     Dates: start: 20100308, end: 20100308
  12. APREPITANT [Concomitant]
     Indication: PRODUCT USED FOR UNKNOWN INDICATION
     Route: 048
     Dates: start: 20100309, end: 20100310
  13. CODEINE SULFATE [Concomitant]
     Indication: PRODUCT USED FOR UNKNOWN INDICATION
     Route: 048
     Dates: start: 20100311, end: 20100312
  14. PAMIDRONATE DISODIUM [Concomitant]
     Route: 042
     Dates: start: 20100303, end: 20100304
  15. BEVACIZUMAB [Suspect]
     Route: 042
     Dates: start: 20100408
  16. ACETAMINOPHEN [Concomitant]
     Route: 054
     Dates: start: 20100303, end: 20100316
  17. CALCIUM CARBONATE [Concomitant]
     Route: 048
     Dates: start: 20100216, end: 20100218
  18. POLYETHYLENE GLYCOL [Concomitant]
     Route: 048
     Dates: start: 20100415, end: 20100424
  19. DEXAMETHASONE [Concomitant]
     Route: 051
     Dates: start: 20100604, end: 20100605
  20. APREPITANT [Concomitant]
     Route: 048
     Dates: start: 20100401, end: 20100402
  21. APREPITANT [Concomitant]
     Route: 048
     Dates: start: 20100625, end: 20100626
  22. DOXORUBICIN HCL [Suspect]
     Indication: SARCOMA METASTATIC
     Route: 065
  23. PAMIDRONATE DISODIUM [Concomitant]
     Indication: PRODUCT USED FOR UNKNOWN INDICATION
     Route: 042
     Dates: start: 20100213, end: 20100216
  24. ACETAMINOPHEN [Concomitant]
     Route: 054
     Dates: start: 20100213, end: 20100215
  25. POLYETHYLENE GLYCOL [Concomitant]
     Route: 048
     Dates: start: 20100424
  26. POLYETHYLENE GLYCOL [Concomitant]
     Route: 048
     Dates: start: 20100501, end: 20100504
  27. APREPITANT [Concomitant]
     Route: 048
     Dates: start: 20100513, end: 20100513
  28. BEVACIZUMAB [Suspect]
     Route: 042
     Dates: start: 20100422
  29. FUROSEMIDE [Concomitant]
     Route: 042
     Dates: start: 20100216, end: 20100217
  30. GRANISETRON [Concomitant]
     Indication: PRODUCT USED FOR UNKNOWN INDICATION
     Route: 042
     Dates: start: 20100213, end: 20100214
  31. CALCIUM CARBONATE [Concomitant]
     Route: 048
     Dates: start: 20100218, end: 20100219
  32. HYDROCORTISONE [Concomitant]
     Indication: PRODUCT USED FOR UNKNOWN INDICATION
     Route: 042
     Dates: start: 20100308, end: 20100312
  33. DEXAMETHASONE [Concomitant]
     Route: 051
     Dates: start: 20100404, end: 20100405
  34. CYCLOPHOSPHAMIDE [Suspect]
     Indication: SARCOMA METASTATIC
     Route: 048
     Dates: start: 20110408, end: 20110423
  35. IFOSFAMIDE [Suspect]
     Indication: SARCOMA METASTATIC
     Route: 065
  36. BEVACIZUMAB [Suspect]
     Indication: SARCOMA METASTATIC
     Route: 042
     Dates: start: 20100308
  37. BEVACIZUMAB [Suspect]
     Route: 042
     Dates: start: 20100308
  38. VINCRISTINE SULFATE [Suspect]
     Indication: SARCOMA METASTATIC
     Route: 042
  39. POLYETHYLENE GLYCOL [Concomitant]
     Route: 048
     Dates: start: 20100312, end: 20100316
  40. POLYETHYLENE GLYCOL [Concomitant]
     Route: 048
     Dates: start: 20100512, end: 20100514
  41. DEXAMETHASONE [Concomitant]
     Route: 051
     Dates: start: 20100403, end: 20100404
  42. DEXAMETHASONE [Concomitant]
     Route: 051
     Dates: start: 20100405, end: 20100407
  43. APREPITANT [Concomitant]
     Route: 048
     Dates: start: 20100404, end: 20100407
  44. APREPITANT [Concomitant]
     Route: 048
     Dates: start: 20100513, end: 20100514
  45. APREPITANT [Concomitant]
     Route: 048
     Dates: start: 20100626, end: 20100627
  46. BEVACIZUMAB [Suspect]
     Route: 042
     Dates: start: 20100422
  47. DACTINOMYCIN [Suspect]
     Indication: SARCOMA METASTATIC
     Route: 042
  48. CALCIUM CARBONATE [Concomitant]
     Indication: PRODUCT USED FOR UNKNOWN INDICATION
     Route: 048
     Dates: start: 20100215, end: 20100216
  49. POLYETHYLENE GLYCOL [Concomitant]
     Indication: PRODUCT USED FOR UNKNOWN INDICATION
     Route: 048
     Dates: start: 20100308, end: 20100312
  50. DEXAMETHASONE [Concomitant]
     Indication: PRODUCT USED FOR UNKNOWN INDICATION
     Route: 051
     Dates: start: 20100309, end: 20100314
  51. DEXAMETHASONE [Concomitant]
     Route: 051
     Dates: start: 20100513, end: 20100514
  52. APREPITANT [Concomitant]
     Route: 048
     Dates: start: 20100310, end: 20100312
  53. BEVACIZUMAB [Suspect]
     Route: 042
     Dates: start: 20100408
  54. FUROSEMIDE [Concomitant]
     Indication: PRODUCT USED FOR UNKNOWN INDICATION
     Route: 042
     Dates: start: 20100213, end: 20100214
  55. GRANISETRON [Concomitant]
     Route: 042
     Dates: start: 20100214, end: 20100217
  56. ALLOPURINOL [Concomitant]
     Indication: PRODUCT USED FOR UNKNOWN INDICATION
     Route: 048
     Dates: start: 20100215, end: 20100217
  57. POLYETHYLENE GLYCOL [Concomitant]
     Route: 048
     Dates: start: 20100329, end: 20100407
  58. GRANISETRON [Concomitant]
     Route: 048
     Dates: start: 20100310, end: 20100316

REACTIONS (4)
  - CYSTITIS HAEMORRHAGIC [None]
  - HYPERTENSION [None]
  - ORAL CANDIDIASIS [None]
  - FEBRILE NEUTROPENIA [None]
